FAERS Safety Report 16507096 (Version 1)
Quarter: 2019Q3

REPORT INFORMATION
  Report Type: Spontaneous
  Country: US (occurrence: US)
  Receive Date: 20190701
  Receipt Date: 20190701
  Transmission Date: 20191004
  Serious: No
  Sender: FDA-Public Use
  Company Number: US-PERRIGO-18US013664

PATIENT
  Age: 52 Year
  Sex: Female
  Weight: 104.31 kg

DRUGS (3)
  1. LANSOPRAZOLE. [Suspect]
     Active Substance: LANSOPRAZOLE
     Dosage: 15 MG, BID
     Route: 048
     Dates: start: 20181123, end: 20181126
  2. INSULIN [Concomitant]
     Active Substance: INSULIN NOS
     Indication: DIABETES MELLITUS
     Dosage: UNK
     Route: 065
  3. LANSOPRAZOLE. [Suspect]
     Active Substance: LANSOPRAZOLE
     Indication: GASTROOESOPHAGEAL REFLUX DISEASE
     Dosage: 15 MG, BID
     Route: 048
     Dates: start: 2013, end: 20181122

REACTIONS (3)
  - Incorrect product administration duration [Recovered/Resolved]
  - Expired product administered [Recovered/Resolved]
  - Inappropriate schedule of product administration [Recovered/Resolved]

NARRATIVE: CASE EVENT DATE: 2013
